FAERS Safety Report 10336994 (Version 1)
Quarter: 2014Q3

REPORT INFORMATION
  Report Type: Report from Study
  Country: CO (occurrence: CO)
  Receive Date: 20140723
  Receipt Date: 20140723
  Transmission Date: 20150326
  Serious: Yes (Hospitalization, Other)
  Sender: FDA-Public Use
  Company Number: CO-TEVA-496181USA

PATIENT
  Age: 22 Year
  Sex: Female
  Weight: 40 kg

DRUGS (5)
  1. BENDAMUSTINE HYDROCHLORIDE [Suspect]
     Active Substance: BENDAMUSTINE HYDROCHLORIDE
     Indication: B-CELL LYMPHOMA
     Dosage: 90 MG/M2, CYCLIC,IN 1 CYCLICAL 135 MG IN 250 ML SALINE SOLUTION INFUSED IN 30 MINUTES(DAY 2 AND 3)
     Route: 042
  2. CYCLOSPORINE. [Suspect]
     Active Substance: CYCLOSPORINE
     Indication: RASH
     Dosage: UNK, UNKNOWN FREQ.
     Route: 065
  3. RITUXIMAB [Suspect]
     Active Substance: RITUXIMAB
     Indication: B-CELL LYMPHOMA
     Route: 065
  4. ONDANSETRON [Concomitant]
     Active Substance: ONDANSETRON
     Indication: PRODUCT USED FOR UNKNOWN INDICATION
     Dosage: 8 MG, EVERY 8 HOURS PER TEN DAYS
     Route: 048
  5. PEGFILGRASTIM [Suspect]
     Active Substance: PEGFILGRASTIM
     Indication: PRODUCT USED FOR UNKNOWN INDICATION
     Route: 058

REACTIONS (20)
  - Respiratory tract infection [Recovered/Resolved]
  - Chest pain [Unknown]
  - Dyspnoea [Unknown]
  - Headache [Unknown]
  - Constipation [Unknown]
  - Dyspepsia [Unknown]
  - Rash [Unknown]
  - Bone pain [Unknown]
  - Colitis [Unknown]
  - Oropharyngeal pain [Unknown]
  - Nasal obstruction [Unknown]
  - Neutropenia [Recovering/Resolving]
  - Dysplasia [Unknown]
  - Hypersensitivity [Unknown]
  - Nausea [Unknown]
  - Tooth abscess [Unknown]
  - Vaginal haemorrhage [Unknown]
  - Rhinorrhoea [Unknown]
  - Myalgia [Unknown]
  - Alopecia [Unknown]

NARRATIVE: CASE EVENT DATE: 20140501
